FAERS Safety Report 21571158 (Version 1)
Quarter: 2022Q4

REPORT INFORMATION
  Report Type: Spontaneous
  Country: AU (occurrence: None)
  Receive Date: 20221109
  Receipt Date: 20221109
  Transmission Date: 20230113
  Serious: Yes (Hospitalization)
  Sender: FDA-Public Use
  Company Number: AU-Orion Corporation ORION PHARMA-ENTC2022-0217

PATIENT
  Sex: Female

DRUGS (1)
  1. STALEVO [Suspect]
     Active Substance: CARBIDOPA\ENTACAPONE\LEVODOPA
     Indication: Product used for unknown indication
     Route: 065

REACTIONS (4)
  - Hip fracture [Unknown]
  - Pain [Unknown]
  - Dysphagia [Unknown]
  - Wrong technique in product usage process [Unknown]
